FAERS Safety Report 24070202 (Version 5)
Quarter: 2024Q3

REPORT INFORMATION
  Report Type: Spontaneous
  Country: US (occurrence: US)
  Receive Date: 20240710
  Receipt Date: 20240917
  Transmission Date: 20241017
  Serious: Yes (Other)
  Sender: UCB
  Company Number: US-UCBSA-2024034743

PATIENT
  Sex: Female
  Weight: 64.9 kg

DRUGS (10)
  1. CIMZIA [Suspect]
     Active Substance: CERTOLIZUMAB PEGOL
     Indication: Ankylosing spondylitis
     Dosage: 400 MILLIGRAM
     Route: 058
     Dates: start: 20240123
  2. CIMZIA [Suspect]
     Active Substance: CERTOLIZUMAB PEGOL
     Dosage: 200 MILLIGRAM, EV 2 WEEKS(QOW)
     Route: 058
     Dates: start: 202406
  3. NARCAN [Concomitant]
     Active Substance: NALOXONE HYDROCHLORIDE
     Indication: Product used for unknown indication
     Dosage: ACTUATION SPRAY 0.1 MILLILITER IN 1 NOSTRIL MAY REPEAT DOSE EVERY 2-3 MINUTES AS NEEDED ALTERNATING
     Route: 045
  4. HISTAMINE DIHYDROCHLORIDE [Concomitant]
     Active Substance: HISTAMINE DIHYDROCHLORIDE
     Indication: Arthralgia
     Dosage: 0.025 % TOPICAL CREAM
     Route: 061
  5. MIRALAX [Concomitant]
     Active Substance: POLYETHYLENE GLYCOL 3350
     Indication: Product used for unknown indication
     Dosage: TAKE (17G) BY ORAL ROUTE ORAL POWDER EVERY DAY MIXED WITH 8 OZ. WATER, JUICE, SODA, COFFEE OR TEA
     Route: 048
  6. OXYCODONE AND ACETAMINOPHEN [Concomitant]
     Active Substance: ACETAMINOPHEN\OXYCODONE HYDROCHLORIDE
     Indication: Product used for unknown indication
     Dosage: TAKE 1 TABLET EVERY 8 HOURS AS NEEDED
     Route: 048
     Dates: start: 20240123, end: 20240513
  7. OXYCODONE AND ACETAMINOPHEN [Concomitant]
     Active Substance: ACETAMINOPHEN\OXYCODONE HYDROCHLORIDE
     Dosage: 7.5 MG -325 MG TAKE 1 TABLET EVERY 6 HOURS AS NEEDED
     Dates: start: 20240314, end: 20240513
  8. IBUPROFEN [Concomitant]
     Active Substance: IBUPROFEN
     Indication: Product used for unknown indication
     Dosage: 800 MG TAKE 1 TABLET N TIMES EVERY DAY WITH FOOD
     Route: 048
     Dates: start: 20240123, end: 20240513
  9. TIZANIDINE [Concomitant]
     Active Substance: TIZANIDINE
     Indication: Product used for unknown indication
     Dosage: 4 MILLIGRAM, 2X/DAY (BID)
     Dates: start: 20240123, end: 20240513
  10. TESTOSTERONE [Concomitant]
     Active Substance: TESTOSTERONE
     Indication: Product used for unknown indication
     Dosage: 30 MG/ACTUATION (1.5 ML) APPLY 1 PUMP EVERY DAY IN THE TRANSDERMAL SOLUTION MORNING TO EACH UNDERARM
     Route: 062

REACTIONS (10)
  - Ankylosing spondylitis [Not Recovered/Not Resolved]
  - Sensory disturbance [Unknown]
  - Anxiety [Unknown]
  - Depression [Unknown]
  - Insomnia [Unknown]
  - Stress [Unknown]
  - Maternal exposure during pregnancy [Unknown]
  - Therapeutic product effect incomplete [Unknown]
  - Insurance issue [Unknown]
  - Therapy interrupted [Unknown]

NARRATIVE: CASE EVENT DATE: 20240101
